FAERS Safety Report 4750331-0 (Version None)
Quarter: 2005Q3

REPORT INFORMATION
  Report Type: 
  Country: None (occurrence: None)
  Receive Date: 20050818
  Receipt Date: 20050802
  Transmission Date: 20060218
  Serious: Yes (Hospitalization)
  Sender: FDA-Public Use
  Company Number: ES-2005-015481

PATIENT
  Sex: Female

DRUGS (1)
  1. BETASERON (INTERFERON BETA - 1B) INJECTION , 250UG(SH Y 579E) [Suspect]
     Indication: MULTIPLE SCLEROSIS
     Dosage: 8 MIU, EVERY 2D, SUBCUTANEOUS
     Route: 058
     Dates: start: 20050131

REACTIONS (2)
  - CELLULITIS [None]
  - PAIN [None]
